FAERS Safety Report 11294660 (Version 2)
Quarter: 2015Q3

REPORT INFORMATION
  Report Type: Report from Study
  Country: US (occurrence: US)
  Receive Date: 20150723
  Receipt Date: 20150811
  Transmission Date: 20151125
  Serious: Yes (Other)
  Sender: FDA-Public Use
  Company Number: US-009507513-1507USA009828

PATIENT

DRUGS (3)
  1. TEMODAR [Suspect]
     Active Substance: TEMOZOLOMIDE
     Dosage: 135 MG/M2/D, ON DAYS 1-5 OF COURSE 1
     Route: 048
  2. VELIPARIB [Suspect]
     Active Substance: VELIPARIB
     Indication: GLIOMA
     Dosage: 25 MG/M2, TWICE DAILY, ON DAYS 1-5 OF COURSE 1
     Route: 048
  3. TEMODAR [Suspect]
     Active Substance: TEMOZOLOMIDE
     Indication: GLIOMA
     Dosage: ONCE DAILY, ON DAYS 1-5 OF EACH 28-DAY COURSE
     Route: 048

REACTIONS (1)
  - Brain stem infarction [Unknown]
